FAERS Safety Report 4662658-1 (Version None)
Quarter: 2005Q2

REPORT INFORMATION
  Report Type: 
  Country: None (occurrence: None)
  Receive Date: 20050506
  Receipt Date: 20040503
  Transmission Date: 20051028
  Serious: No
  Sender: FDA-Public Use
  Company Number: 2004UW09162

PATIENT
  Age: 78 Year
  Sex: Female

DRUGS (3)
  1. NEXIUM [Suspect]
     Dates: start: 20040420
  2. ZESTORETIC [Suspect]
     Dosage: 20/25 MG DAILY
  3. ASPIRIN [Concomitant]

REACTIONS (2)
  - ANGIONEUROTIC OEDEMA [None]
  - URTICARIA [None]
